FAERS Safety Report 8275140-X (Version None)
Quarter: 2012Q2

REPORT INFORMATION
  Report Type: 
  Country: None (occurrence: None)
  Receive Date: 20120411
  Receipt Date: 20120322
  Transmission Date: 20120825
  Serious: Yes (Hospitalization)
  Sender: FDA-Public Use
  Company Number: PHHO2012JP002544

PATIENT
  Sex: Male

DRUGS (20)
  1. ENALAPRIL MALEATE [Suspect]
     Dosage: UNK
     Route: 048
     Dates: start: 20100304
  2. RABEPRAZOLE SODIUM [Suspect]
     Indication: PROPHYLAXIS
     Dosage: 10 MG, UNK
     Route: 048
     Dates: start: 20080722
  3. ALISKIREN [Suspect]
     Dosage: UNK
     Route: 048
     Dates: start: 20100304
  4. ASPIRIN [Suspect]
     Indication: PROPHYLAXIS
     Dosage: 200 MG, UNK
     Route: 048
     Dates: start: 20080722
  5. ASPIRIN [Suspect]
     Dosage: 200 MG, UNK
     Route: 048
     Dates: start: 20110728
  6. SIGMART [Suspect]
     Indication: PROPHYLAXIS
     Dosage: 15 MG, UNK
     Route: 048
     Dates: start: 20080722
  7. ENALAPRIL MALEATE [Suspect]
     Indication: CARDIAC FAILURE
     Dosage: UNK
     Route: 048
     Dates: start: 20100107, end: 20100303
  8. PULMICORT [Suspect]
     Dosage: UNK
     Dates: start: 20110915
  9. WARFARIN SODIUM [Suspect]
     Dosage: 3.5 MG, UNK
     Route: 048
     Dates: start: 20110810, end: 20110821
  10. ALLOPURINOL [Suspect]
     Dosage: 200 MG, UNK
     Route: 048
     Dates: start: 20080918
  11. CARVEDILOL [Suspect]
     Indication: CARDIAC FAILURE CHRONIC
     Dosage: 10 MG, UNK
     Route: 048
     Dates: start: 20081211
  12. LASIX [Suspect]
     Indication: CARDIAC FAILURE CHRONIC
     Dosage: 40 MG, UNK
     Route: 048
     Dates: start: 20080722
  13. WARFARIN SODIUM [Suspect]
     Dosage: 3.25 MG, UNK
     Route: 048
     Dates: start: 20110916
  14. SLOW-K [Suspect]
     Indication: HYPOKALAEMIA
     Dosage: 600 MG, UNK
     Route: 048
     Dates: start: 20100916
  15. LIPITOR [Suspect]
     Dosage: 10 MG, UNK
     Route: 048
     Dates: start: 20080722
  16. ALISKIREN [Suspect]
     Indication: CARDIAC FAILURE
     Dosage: UNK
     Route: 048
     Dates: start: 20100218, end: 20100303
  17. WARFARIN SODIUM [Suspect]
     Dosage: 3.5 MG, UNK
     Route: 048
     Dates: start: 20110428, end: 20110803
  18. WARFARIN SODIUM [Suspect]
     Dosage: 3.5 MG, UNK
     Route: 048
     Dates: start: 20110827, end: 20110905
  19. ASPIRIN [Suspect]
     Dosage: 200 MG, UNK
     Route: 048
     Dates: start: 20110810, end: 20110818
  20. ASPIRIN [Suspect]
     Dosage: 100 MG, UNK
     Route: 048
     Dates: start: 20111021

REACTIONS (2)
  - CEREBRAL INFARCTION [None]
  - ASTHMA [None]
